FAERS Safety Report 5494069-3 (Version None)
Quarter: 2007Q4

REPORT INFORMATION
  Report Type: 
  Country: None (occurrence: None)
  Receive Date: 20071023
  Receipt Date: 20071012
  Transmission Date: 20080405
  Serious: Yes (Other)
  Sender: FDA-Public Use
  Company Number: US-PFIZER INC-2007087102

PATIENT
  Sex: Female
  Weight: 83 kg

DRUGS (8)
  1. CHANTIX [Suspect]
     Indication: SMOKING CESSATION THERAPY
  2. KLONOPIN [Suspect]
     Indication: BIPOLAR DISORDER
  3. LIPITOR [Concomitant]
  4. TRICOR [Concomitant]
  5. LAMICTAL [Concomitant]
  6. REMERON [Concomitant]
  7. GLUCOPHAGE [Concomitant]
  8. GEODON [Concomitant]

REACTIONS (5)
  - ANXIETY [None]
  - DYSARTHRIA [None]
  - INSOMNIA [None]
  - SOMNOLENCE [None]
  - TRANSIENT ISCHAEMIC ATTACK [None]
